FAERS Safety Report 25868092 (Version 3)
Quarter: 2025Q4

REPORT INFORMATION
  Report Type: Spontaneous
  Country: GB (occurrence: GB)
  Receive Date: 20251001
  Receipt Date: 20251017
  Transmission Date: 20260118
  Serious: Yes (Other)
  Sender: TEVA
  Company Number: GB-MLMSERVICE-20250829-PI628944-00336-1

PATIENT
  Age: 32 Year
  Sex: Male
  Weight: 54 kg

DRUGS (1)
  1. ZOLEDRONIC ACID [Suspect]
     Active Substance: ZOLEDRONIC ACID
     Indication: Bone pain
     Dosage: 1 DF
     Route: 042
     Dates: start: 2022

REACTIONS (2)
  - Deafness [Unknown]
  - Bone pain [Recovering/Resolving]

NARRATIVE: CASE EVENT DATE: 20220101
